FAERS Safety Report 10075404 (Version 1)
Quarter: 2014Q2

REPORT INFORMATION
  Report Type: Spontaneous
  Country: US (occurrence: None)
  Receive Date: 20140411
  Receipt Date: 20140411
  Transmission Date: 20141212
  Serious: Yes (Death)
  Sender: FDA-Public Use
  Company Number: None

PATIENT
  Age: 41 Year
  Sex: Female
  Weight: 76.3 kg

DRUGS (7)
  1. AVASTIN [Suspect]
     Indication: COLON CANCER METASTATIC
     Dates: start: 20131120, end: 20131220
  2. CAPECITABINE [Concomitant]
     Route: 042
     Dates: start: 20131120, end: 20131220
  3. OXALIPLATIN [Concomitant]
  4. IRINOTECAN [Concomitant]
  5. ONDANSETRON [Concomitant]
  6. PROMETHAZINE [Concomitant]
  7. HYDROMORPHONE [Concomitant]

REACTIONS (1)
  - Cerebrovascular accident [None]
